FAERS Safety Report 22050557 (Version 1)
Quarter: 2023Q1

REPORT INFORMATION
  Report Type: Spontaneous
  Country: FR (occurrence: FR)
  Receive Date: 20230301
  Receipt Date: 20230301
  Transmission Date: 20230418
  Serious: Yes (Hospitalization)
  Sender: FDA-Public Use
  Company Number: FR-MYLANLABS-2023M1021694

PATIENT
  Age: 6 Year
  Sex: Female
  Weight: 23 kg

DRUGS (4)
  1. NOREPINEPHRINE [Suspect]
     Active Substance: NOREPINEPHRINE
     Indication: Product used for unknown indication
     Dosage: 2 MILLIGRAM (INTRAVENOUS BOLUS)
     Route: 042
  2. MIDAZOLAM [Concomitant]
     Active Substance: MIDAZOLAM
     Indication: Dental operation
     Dosage: 5 MILLIGRAM
     Route: 048
  3. SEVOFLURANE [Concomitant]
     Active Substance: SEVOFLURANE
     Indication: General anaesthesia
     Dosage: UNK, RESPIRATORY (INHALATION)
  4. SUFENTANIL [Concomitant]
     Active Substance: SUFENTANIL
     Indication: General anaesthesia
     Dosage: 4 MICROGRAM (INTRAVENOUS BOLUS)
     Route: 042

REACTIONS (2)
  - Myocardial stunning [Recovered/Resolved]
  - Wrong product administered [Unknown]
